FAERS Safety Report 5373500-8 (Version None)
Quarter: 2007Q2

REPORT INFORMATION
  Report Type: 
  Country: None (occurrence: None)
  Receive Date: 20070626
  Receipt Date: 20070626
  Transmission Date: 20071010
  Serious: Yes (Other)
  Sender: FDA-Public Use
  Company Number: None

PATIENT
  Age: 43 Year
  Sex: Female
  Weight: 57.6068 kg

DRUGS (1)
  1. YAZ [Suspect]
     Indication: MENOPAUSE
     Dosage: AS PRESCRIBED DAILY PO
     Route: 048
     Dates: start: 20061101, end: 20061104

REACTIONS (10)
  - ARTHRALGIA [None]
  - CRYING [None]
  - DEPRESSION SUICIDAL [None]
  - DISSOCIATION [None]
  - FEELING HOT AND COLD [None]
  - HYPERACUSIS [None]
  - INFLUENZA LIKE ILLNESS [None]
  - MYALGIA [None]
  - NAUSEA [None]
  - PHOTOPHOBIA [None]
